FAERS Safety Report 4499600-2 (Version None)
Quarter: 2004Q4

REPORT INFORMATION
  Report Type: 
  Country: None (occurrence: None)
  Receive Date: 20040928
  Receipt Date: 20040818
  Transmission Date: 20050328
  Serious: No
  Sender: FDA-Public Use
  Company Number: 04P-163-0270899-00

PATIENT
  Age: 47 Year
  Sex: Male
  Weight: 115.6672 kg

DRUGS (7)
  1. HUMIRA [Suspect]
     Indication: RHEUMATOID ARTHRITIS
     Dosage: 40 MG, 1 IN 2 WK, SUBCUTANEOUS
     Route: 058
     Dates: start: 20040501, end: 20040814
  2. METHOTREXATE [Concomitant]
  3. FOLIC ACID [Concomitant]
  4. ZOCOR [Concomitant]
  5. QUINAPRIL HYDROCHLORIDE [Concomitant]
  6. SERETIDE MITE [Concomitant]
  7. SALBUTAMOL [Concomitant]

REACTIONS (1)
  - BRONCHITIS [None]
